FAERS Safety Report 5144208-9 (Version None)
Quarter: 2006Q4

REPORT INFORMATION
  Report Type: 
  Country: None (occurrence: None)
  Receive Date: 20061106
  Receipt Date: 20061026
  Transmission Date: 20070319
  Serious: Yes (Other)
  Sender: FDA-Public Use
  Company Number: US-JNJFOC-20061006440

PATIENT
  Age: 31 Year
  Sex: Female

DRUGS (8)
  1. REMICADE [Suspect]
     Route: 042
  2. REMICADE [Suspect]
     Route: 042
  3. REMICADE [Suspect]
     Indication: CROHN'S DISEASE
     Dosage: RECEIVED 1 DOSE ABOUT A YEAR AND A HALF AGO.
     Route: 042
  4. ALEVE [Concomitant]
     Indication: PAIN
  5. LORTAB [Concomitant]
     Indication: PAIN
  6. SIMETHICONE [Concomitant]
     Indication: GASTROINTESTINAL DISORDER
  7. PHENERGAN [Concomitant]
     Indication: NAUSEA
  8. LEVAQUIN [Concomitant]

REACTIONS (2)
  - ARTHRALGIA [None]
  - ASTHENIA [None]
